FAERS Safety Report 7501390-3 (Version None)
Quarter: 2011Q2

REPORT INFORMATION
  Report Type: 
  Country: None (occurrence: None)
  Receive Date: 20110524
  Receipt Date: 20110502
  Transmission Date: 20111010
  Serious: Yes (Other)
  Sender: FDA-Public Use
  Company Number: US-BAYER-201039870NA

PATIENT
  Age: 34 Year
  Sex: Female
  Weight: 95.238 kg

DRUGS (5)
  1. YAZ [Suspect]
     Indication: CONTRACEPTION
     Dosage: UNK
     Route: 048
     Dates: start: 20070801, end: 20091101
  2. YASMIN [Suspect]
     Indication: CONTRACEPTION
     Route: 048
     Dates: start: 20040701, end: 20070801
  3. REGLAN [Concomitant]
  4. PREVACID [Concomitant]
  5. PROGESTERONE [Concomitant]

REACTIONS (4)
  - GALLBLADDER DISORDER [None]
  - GASTRIC DISORDER [None]
  - ABDOMINAL PAIN [None]
  - CHOLELITHIASIS [None]
